FAERS Safety Report 23795163 (Version 1)
Quarter: 2024Q2

REPORT INFORMATION
  Report Type: Spontaneous
  Country: US (occurrence: None)
  Receive Date: 20240426
  Receipt Date: 20240426
  Transmission Date: 20240716
  Serious: No
  Sender: FDA-Public Use
  Company Number: None

PATIENT
  Age: 44 Year
  Sex: Male
  Weight: 94.5 kg

DRUGS (4)
  1. COSENTYX [Suspect]
     Active Substance: SECUKINUMAB
     Indication: Psoriatic arthropathy
     Dosage: OTHER FREQUENCY : EVERY 4 WEEKS;?
     Route: 058
     Dates: start: 20230510
  2. COSENTYX [Suspect]
     Active Substance: SECUKINUMAB
     Indication: Psoriasis
  3. Lisinopril- Hydrochlorothiazide 20-12.5mg [Concomitant]
  4. clobetasol prop 0.05% cream [Concomitant]

REACTIONS (3)
  - Bursitis [None]
  - Pyrexia [None]
  - Herpes zoster [None]

NARRATIVE: CASE EVENT DATE: 20240420
